FAERS Safety Report 8192806 (Version 2)
Quarter: 2018Q4

REPORT INFORMATION
  Report Type: Spontaneous
  Country: US (occurrence: US)
  Receive Date: 20111021
  Receipt Date: 20181004
  Transmission Date: 20190205
  Serious: Yes (Other)
  Sender: FDA-Public Use
  Company Number: US-PERRIGO-11US008704

PATIENT
  Sex: Male
  Weight: 77.1 kg

DRUGS (5)
  1. COMMIT [Suspect]
     Active Substance: NICOTINE
     Indication: SMOKING CESSATION THERAPY
     Dosage: UNK, INTERMITTENT
     Route: 002
  2. NICOTINE GUM AND LOZENGES [Suspect]
     Active Substance: NICOTINE
     Indication: SMOKING CESSATION THERAPY
     Dosage: UNK, DAILY
     Route: 002
     Dates: start: 2001, end: 2006
  3. NICOTINE POLACRILEX [Suspect]
     Active Substance: NICOTINE
     Indication: SMOKING CESSATION THERAPY
     Dosage: UNK, INTERMITTENT
     Route: 002
     Dates: start: 2006
  4. NICOTINE 4 MG MINT 873 [Suspect]
     Active Substance: NICOTINE
     Indication: SMOKING CESSATION THERAPY
     Dosage: UNK, INTERMITTENT
     Route: 002
     Dates: start: 2006
  5. NICOTINE POLACRILEX [Suspect]
     Active Substance: NICOTINE

REACTIONS (5)
  - Rectal cancer [Unknown]
  - Overdose [Unknown]
  - Tobacco abuse [Unknown]
  - Nicotine dependence [Unknown]
  - Incorrect product administration duration [Unknown]

NARRATIVE: CASE EVENT DATE: 2006
